FAERS Safety Report 15207071 (Version 5)
Quarter: 2018Q4

REPORT INFORMATION
  Report Type: Report from Study
  Country: DE (occurrence: DE)
  Receive Date: 20180727
  Receipt Date: 20181113
  Transmission Date: 20190204
  Serious: No
  Sender: FDA-Public Use
  Company Number: DE-ROCHE-2130927

PATIENT
  Age: 67 Year
  Sex: Female

DRUGS (9)
  1. OCREVUS [Suspect]
     Active Substance: OCRELIZUMAB
     Route: 042
     Dates: start: 20180411
  2. TOLPERISONE [Concomitant]
     Active Substance: TOLPERISONE
     Dosage: 3X2
     Route: 065
  3. FAMPYRA [Concomitant]
     Active Substance: DALFAMPRIDINE
  4. OCREVUS [Suspect]
     Active Substance: OCRELIZUMAB
     Indication: PRIMARY PROGRESSIVE MULTIPLE SCLEROSIS
     Route: 041
     Dates: start: 20180404
  5. OCREVUS [Suspect]
     Active Substance: OCRELIZUMAB
     Route: 042
     Dates: start: 20180425
  6. OCREVUS [Suspect]
     Active Substance: OCRELIZUMAB
     Route: 042
     Dates: start: 20181015
  7. TIZANIDIN [Concomitant]
     Active Substance: TIZANIDINE HYDROCHLORIDE
     Dosage: AS REQUIRED
     Route: 065
  8. SATIVEX [Concomitant]
     Active Substance: NABIXIMOLS
  9. SPASMOLYT [Concomitant]

REACTIONS (4)
  - Herpes ophthalmic [Recovered/Resolved]
  - Alopecia [Recovered/Resolved]
  - Groin infection [Recovered/Resolved]
  - Herpes virus infection [Recovered/Resolved]

NARRATIVE: CASE EVENT DATE: 20180518
